FAERS Safety Report 18915680 (Version 1)
Quarter: 2021Q1

REPORT INFORMATION
  Report Type: Spontaneous
  Country: DE (occurrence: DE)
  Receive Date: 20210219
  Receipt Date: 20210219
  Transmission Date: 20210420
  Serious: Yes (Other)
  Sender: FDA-Public Use
  Company Number: DE-MYLANLABS-2021M1009952

PATIENT
  Age: 38 Year
  Sex: Male

DRUGS (7)
  1. CISPLATIN. [Suspect]
     Active Substance: CISPLATIN
     Indication: MIXED HEPATOCELLULAR CHOLANGIOCARCINOMA
     Dosage: FIRST USED DURING TRIPLE DRUG TRANSARTERIAL CHEMOEMBOLISATION, THEN FOR ....
     Route: 065
     Dates: start: 2014
  2. EVEROLIMUS. [Concomitant]
     Active Substance: EVEROLIMUS
     Indication: IMMUNOSUPPRESSANT DRUG THERAPY
     Dosage: 1.25 MILLIGRAM, BID
     Route: 065
     Dates: start: 2014
  3. GEMCITABINE. [Suspect]
     Active Substance: GEMCITABINE
     Indication: MIXED HEPATOCELLULAR CHOLANGIOCARCINOMA
     Dosage: FOR SYSTEMIC CHEMOTHERAPY, THEN FOR ADJUVANT CHEMOTHERAPY FOLLOWING ..
     Route: 065
     Dates: start: 2014
  4. DOXORUBICIN [Concomitant]
     Active Substance: DOXORUBICIN
     Indication: MIXED HEPATOCELLULAR CHOLANGIOCARCINOMA
     Dosage: DURING TRIPLE DRUG TRANSARTERIAL CHEMOEMBOLISATION
     Route: 065
     Dates: start: 2014
  5. MITOMYCIN. [Concomitant]
     Active Substance: MITOMYCIN
     Indication: MIXED HEPATOCELLULAR CHOLANGIOCARCINOMA
     Dosage: DURING TRIPLE DRUG TRANSARTERIAL CHEMOEMBOLISATION
     Route: 065
     Dates: start: 2014
  6. TACROLIMUS. [Concomitant]
     Active Substance: TACROLIMUS
     Indication: IMMUNOSUPPRESSANT DRUG THERAPY
     Dosage: 2 MILLIGRAM, QD
     Route: 065
     Dates: start: 2014
  7. PANITUMUMAB [Suspect]
     Active Substance: PANITUMUMAB
     Indication: MIXED HEPATOCELLULAR CHOLANGIOCARCINOMA
     Dosage: FOR SYSTEMIC CHEMOTHERAPY
     Route: 065
     Dates: start: 2014

REACTIONS (4)
  - Thrombocytopenia [Recovered/Resolved]
  - Rash pustular [Unknown]
  - Neutropenia [Recovered/Resolved]
  - Rash [Unknown]

NARRATIVE: CASE EVENT DATE: 2014
